FAERS Safety Report 7131489-5 (Version None)
Quarter: 2010Q4

REPORT INFORMATION
  Report Type: 
  Country: None (occurrence: None)
  Receive Date: 20101201
  Receipt Date: 20101129
  Transmission Date: 20110411
  Serious: Yes (Other)
  Sender: FDA-Public Use
  Company Number: JP-PFIZER INC-2010145204

PATIENT
  Age: 36 Year
  Sex: Male
  Weight: 71 kg

DRUGS (3)
  1. CHANTIX [Suspect]
     Indication: NICOTINE DEPENDENCE
     Dosage: 0.5 MG, 1X/DAY
     Route: 048
     Dates: start: 20100811, end: 20100813
  2. CHANTIX [Suspect]
     Dosage: 0.5 MG, 2X/DAY
     Route: 048
     Dates: start: 20100814, end: 20100817
  3. CHANTIX [Suspect]
     Dosage: 1 MG, 2X/DAY
     Route: 048
     Dates: start: 20100818

REACTIONS (7)
  - ABDOMINAL DISTENSION [None]
  - ABNORMAL DREAMS [None]
  - ASTHENIA [None]
  - BLOOD PRESSURE DECREASED [None]
  - CYANOSIS [None]
  - NAUSEA [None]
  - SOMNOLENCE [None]
